FAERS Safety Report 6048525-X (Version None)
Quarter: 2009Q1

REPORT INFORMATION
  Report Type: 
  Country: None (occurrence: None)
  Receive Date: 20090123
  Receipt Date: 20090119
  Transmission Date: 20090719
  Serious: Yes (Hospitalization, Disabling)
  Sender: FDA-Public Use
  Company Number: FR-BRISTOL-MYERS SQUIBB COMPANY-14477905

PATIENT
  Age: 54 Year
  Sex: Male

DRUGS (1)
  1. AMIKLIN INJ [Suspect]
     Indication: LUNG DISORDER
     Route: 042
     Dates: start: 20080421, end: 20080424

REACTIONS (2)
  - NEUROSENSORY HYPOACUSIS [None]
  - TINNITUS [None]
